FAERS Safety Report 14952157 (Version 1)
Quarter: 2018Q2

REPORT INFORMATION
  Report Type: Report from Study
  Country: IT (occurrence: IT)
  Receive Date: 20180530
  Receipt Date: 20180530
  Transmission Date: 20180711
  Serious: Yes (Hospitalization)
  Sender: FDA-Public Use
  Company Number: IT-PFIZER INC-2018217909

PATIENT
  Age: 83 Year
  Sex: Female

DRUGS (2)
  1. LORAZEPAM. [Suspect]
     Active Substance: LORAZEPAM
     Route: 048
     Dates: start: 20180206, end: 20180206
  2. CLOZAPINE. [Suspect]
     Active Substance: CLOZAPINE
     Dosage: 2 DF, UNK
     Route: 048
     Dates: start: 20180206, end: 20180206

REACTIONS (3)
  - Wrong drug administered [Recovering/Resolving]
  - Presyncope [Recovering/Resolving]
  - Sopor [Recovering/Resolving]
